FAERS Safety Report 13245093 (Version 1)
Quarter: 2017Q1

REPORT INFORMATION
  Report Type: Spontaneous
  Country: US (occurrence: US)
  Receive Date: 20170217
  Receipt Date: 20170217
  Transmission Date: 20170428
  Serious: Yes (Other)
  Sender: FDA-Public Use
  Company Number: US-AMGEN-USASP2017022307

PATIENT
  Age: 59 Year
  Sex: Male

DRUGS (3)
  1. SENSIPAR [Suspect]
     Active Substance: CINACALCET HYDROCHLORIDE
     Indication: HYPERPARATHYROIDISM SECONDARY
     Dosage: UNK
     Route: 065
     Dates: start: 2012
  2. SENSIPAR [Suspect]
     Active Substance: CINACALCET HYDROCHLORIDE
     Dosage: 60 MG, UNK
     Route: 065
  3. SENSIPAR [Suspect]
     Active Substance: CINACALCET HYDROCHLORIDE
     Dosage: 90 MG, UNK
     Route: 065
     Dates: start: 201612

REACTIONS (9)
  - Hypertension [Unknown]
  - Ammonia increased [Unknown]
  - Blood phosphorus abnormal [Unknown]
  - Blood parathyroid hormone abnormal [Unknown]
  - Blood calcium decreased [Unknown]
  - Ascites [Unknown]
  - Blood albumin decreased [Unknown]
  - Intentional product misuse [Unknown]
  - Liver disorder [Not Recovered/Not Resolved]
